FAERS Safety Report 6337607-0 (Version None)
Quarter: 2009Q3

REPORT INFORMATION
  Report Type: 
  Country: None (occurrence: None)
  Receive Date: 20090902
  Receipt Date: 20090826
  Transmission Date: 20100115
  Serious: Yes (Hospitalization)
  Sender: FDA-Public Use
  Company Number: US-BAYER-200931210NA

PATIENT
  Age: 30 Year
  Sex: Female

DRUGS (1)
  1. MIRENA [Suspect]
     Indication: CONTRACEPTION
     Dosage: AS USED: 20 ?G
     Route: 015
     Dates: start: 20090501

REACTIONS (8)
  - ABDOMINAL PAIN LOWER [None]
  - BIPOLAR DISORDER [None]
  - DEPRESSION [None]
  - HEADACHE [None]
  - MENTAL DISORDER [None]
  - PSYCHOTIC DISORDER [None]
  - STRESS [None]
  - VAGINAL HAEMORRHAGE [None]
